FAERS Safety Report 15354827 (Version 7)
Quarter: 2025Q3

REPORT INFORMATION
  Report Type: Spontaneous
  Country: EU (occurrence: EU)
  Receive Date: 20180906
  Receipt Date: 20250701
  Transmission Date: 20251021
  Serious: Yes (Disabling)
  Sender: AUROBINDO
  Company Number: EU-AUROBINDO-AUR-APL-2018-044217

PATIENT
  Age: 52 Year
  Sex: Male

DRUGS (4)
  1. ARIPIPRAZOLE [Suspect]
     Active Substance: ARIPIPRAZOLE
     Indication: Mania
     Route: 065
  2. RISPERIDONE [Suspect]
     Active Substance: RISPERIDONE
     Indication: Mania
     Route: 065
  3. QUETIAPINE [Suspect]
     Active Substance: QUETIAPINE
     Indication: Mania
     Route: 048
  4. LITHIUM [Suspect]
     Active Substance: LITHIUM
     Indication: Mania
     Route: 065

REACTIONS (5)
  - Cognitive disorder [Unknown]
  - Condition aggravated [Unknown]
  - Mania [Unknown]
  - Parkinsonism [Unknown]
  - Blunted affect [Unknown]
